FAERS Safety Report 12550298 (Version 1)
Quarter: 2016Q3

REPORT INFORMATION
  Report Type: Spontaneous
  Country: US (occurrence: US)
  Receive Date: 20160712
  Receipt Date: 20160712
  Transmission Date: 20161109
  Serious: No
  Sender: FDA-Public Use
  Company Number: US-ENDO PHARMACEUTICALS INC.-2015-003864

PATIENT
  Sex: Male
  Weight: 77.63 kg

DRUGS (1)
  1. EDEX [Suspect]
     Active Substance: ALPROSTADIL
     Indication: PENIS DISORDER
     Route: 065
     Dates: start: 2014, end: 201509

REACTIONS (6)
  - Scar [Not Recovered/Not Resolved]
  - Penile size reduced [Not Recovered/Not Resolved]
  - Penile curvature [Not Recovered/Not Resolved]
  - Unevaluable event [Not Recovered/Not Resolved]
  - Penis disorder [Not Recovered/Not Resolved]
  - Penile vascular disorder [Not Recovered/Not Resolved]

NARRATIVE: CASE EVENT DATE: 2015
